FAERS Safety Report 24568923 (Version 1)
Quarter: 2024Q4

REPORT INFORMATION
  Report Type: Spontaneous
  Country: CN (occurrence: CN)
  Receive Date: 20241031
  Receipt Date: 20241031
  Transmission Date: 20250115
  Serious: Yes (Hospitalization)
  Sender: Hugel Aesthetics
  Company Number: CN-Hugel Aesthetics-2164175

PATIENT
  Age: 56 Year
  Sex: Female

DRUGS (1)
  1. LETYBO [Suspect]
     Active Substance: LETIBOTULINUMTOXINA-WLBG
     Dates: start: 20241002

REACTIONS (8)
  - Dizziness [Recovering/Resolving]
  - Cough [Recovering/Resolving]
  - Diplopia [Recovering/Resolving]
  - Chest discomfort [Recovering/Resolving]
  - Retching [Recovering/Resolving]
  - Nausea [Recovering/Resolving]
  - Headache [Recovering/Resolving]
  - Dysstasia [Recovering/Resolving]

NARRATIVE: CASE EVENT DATE: 20241006
